FAERS Safety Report 6231620-X (Version None)
Quarter: 2009Q2

REPORT INFORMATION
  Report Type: 
  Country: None (occurrence: None)
  Receive Date: 20090616
  Receipt Date: 20090608
  Transmission Date: 20091009
  Serious: Yes (Other)
  Sender: FDA-Public Use
  Company Number: US-JNJFOC-20090602878

PATIENT
  Sex: Male
  Weight: 83.92 kg

DRUGS (8)
  1. REMICADE [Suspect]
     Route: 042
  2. REMICADE [Suspect]
     Indication: CROHN'S DISEASE
     Route: 042
  3. LIALDA [Concomitant]
     Indication: CROHN'S DISEASE
  4. LISINOPRIL [Concomitant]
     Indication: HYPERTENSION
  5. OMEPRAZOLE [Concomitant]
     Indication: GASTROOESOPHAGEAL REFLUX DISEASE
  6. LIPITOR [Concomitant]
     Indication: HYPERCHOLESTEROLAEMIA
  7. ZYRTEC [Concomitant]
     Indication: PREMEDICATION
  8. PREDNISONE [Concomitant]
     Indication: PREMEDICATION

REACTIONS (1)
  - COLON OPERATION [None]
